FAERS Safety Report 21165738 (Version 8)
Quarter: 2024Q2

REPORT INFORMATION
  Report Type: Report from Study
  Country: US (occurrence: US)
  Receive Date: 20220803
  Receipt Date: 20240508
  Transmission Date: 20240715
  Serious: No
  Sender: FDA-Public Use
  Company Number: US-NOVARTISTESTPH-NVSC2022US175329

PATIENT
  Age: 67 Year
  Sex: Female

DRUGS (1)
  1. KESIMPTA [Suspect]
     Active Substance: OFATUMUMAB
     Indication: Multiple sclerosis
     Dosage: 20 MG, QMO
     Route: 058
     Dates: start: 20220616

REACTIONS (10)
  - Feeling abnormal [Unknown]
  - Fatigue [Unknown]
  - Hypersomnia [Unknown]
  - Memory impairment [Unknown]
  - Condition aggravated [Unknown]
  - Asthenia [Unknown]
  - Coordination abnormal [Unknown]
  - Muscle spasms [Unknown]
  - Accidental exposure to product [Unknown]
  - Injection site pain [Unknown]

NARRATIVE: CASE EVENT DATE: 20220714
